FAERS Safety Report 9806215 (Version 1)
Quarter: 2014Q1

REPORT INFORMATION
  Report Type: Spontaneous
  Country: US (occurrence: US)
  Receive Date: 20140109
  Receipt Date: 20140109
  Transmission Date: 20141002
  Serious: Yes (Other)
  Sender: FDA-Public Use
  Company Number: US-PFIZER INC-2014004563

PATIENT
  Sex: Male

DRUGS (1)
  1. ADVIL [Suspect]
     Dosage: UNK
     Route: 045

REACTIONS (4)
  - Incorrect route of drug administration [Unknown]
  - Drug abuse [Unknown]
  - Euphoric mood [Unknown]
  - Feeling abnormal [Unknown]
